FAERS Safety Report 8886996 (Version 1)
Quarter: 2012Q4

REPORT INFORMATION
  Report Type: 
  Country: BR (occurrence: BR)
  Receive Date: 20121105
  Receipt Date: 20121105
  Transmission Date: 20130627
  Serious: Yes (Other)
  Sender: FDA-Public Use
  Company Number: BR-MERCK-1211BRA001536

PATIENT
  Age: 37 Year
  Sex: Male
  Weight: 78 kg

DRUGS (4)
  1. VICTRELIS [Suspect]
     Indication: HEPATITIS C
     Dosage: UNK, tid
     Route: 048
     Dates: start: 20120903, end: 20121017
  2. PEG-INTRON [Suspect]
     Indication: HEPATITIS C
     Dosage: 100 Microgram, qw
     Route: 058
     Dates: start: 20120803, end: 20121017
  3. LOSARTAN POTASSIUM [Suspect]
     Indication: HYPERTENSION
     Dosage: UNK, qd
     Route: 048
     Dates: start: 2011
  4. RIBAVIRIN [Concomitant]
     Indication: HEPATITIS C
     Dosage: UNK, bid
     Route: 048
     Dates: start: 20120803, end: 20121017

REACTIONS (3)
  - Convulsion [Recovered/Resolved]
  - Platelet count decreased [Recovering/Resolving]
  - Decreased immune responsiveness [Unknown]
